FAERS Safety Report 9368285 (Version 1)
Quarter: 2013Q2

REPORT INFORMATION
  Report Type: Spontaneous
  Country: US (occurrence: US)
  Receive Date: 20130625
  Receipt Date: 20130625
  Transmission Date: 20140414
  Serious: No
  Sender: FDA-Public Use
  Company Number: US-ASTELLAS-2013US001817

PATIENT
  Sex: Female
  Weight: 45 kg

DRUGS (4)
  1. VESICARE [Suspect]
     Indication: HYPERTONIC BLADDER
     Dosage: 10 MG, PRN
     Route: 048
     Dates: start: 20120131
  2. COPAXONE [Concomitant]
     Indication: MULTIPLE SCLEROSIS
     Dosage: 20 MG, UID/QD
     Route: 042
  3. TRAMADOL [Concomitant]
     Indication: PAIN
     Dosage: UNK
     Route: 048
  4. LISINOPRIL [Concomitant]
     Indication: BLOOD PRESSURE
     Dosage: UID/QD
     Route: 048

REACTIONS (3)
  - Dental caries [Unknown]
  - Constipation [Unknown]
  - Dry mouth [Unknown]
